FAERS Safety Report 20731211 (Version 1)
Quarter: 2022Q2

REPORT INFORMATION
  Report Type: Spontaneous
  Country: US (occurrence: US)
  Receive Date: 20220420
  Receipt Date: 20220420
  Transmission Date: 20220721
  Serious: Yes (Death, Hospitalization)
  Sender: FDA-Public Use
  Company Number: US-Fresenius Medical Care Renal Therapies Group-FMC-2204-000574

PATIENT
  Age: 52 Year
  Sex: Female

DRUGS (1)
  1. DELFLEX [Suspect]
     Active Substance: CALCIUM CHLORIDE\DEXTROSE\MAGNESIUM CHLORIDE\SODIUM CHLORIDE\SODIUM LACTATE
     Indication: End stage renal disease
     Route: 033

REACTIONS (9)
  - Cardiac arrest [Fatal]
  - Cardiac failure congestive [Unknown]
  - Hypervolaemia [Unknown]
  - Hyperglycaemia [Unknown]
  - Pneumonia [Unknown]
  - Mental status changes [Unknown]
  - Hypotension [Unknown]
  - Vomiting [Unknown]
  - Decreased appetite [Unknown]
